FAERS Safety Report 8556034-9 (Version None)
Quarter: 2012Q3

REPORT INFORMATION
  Report Type: 
  Country: None (occurrence: None)
  Receive Date: 20120719
  Receipt Date: 20120709
  Transmission Date: 20120928
  Serious: Yes (Other)
  Sender: FDA-Public Use
  Company Number: 1349047

PATIENT
  Age: 34 Year
  Sex: Male

DRUGS (20)
  1. AZITHROMYCIN [Concomitant]
  2. RITONAVIR [Concomitant]
  3. EMTRICITABINE AND TENOFOVIR DISOPROXIL FUMARATE [Concomitant]
  4. ETHAMBUTOL HYDROCHLORIDE [Concomitant]
  5. CHOLECALCIFEROL [Concomitant]
  6. LIDOCAINE HCL VISCOUS [Concomitant]
  7. FAMOTIDINE [Suspect]
     Indication: PRODUCT USED FOR UNKNOWN INDICATION
     Dosage: 20 MG TWICE DAILY, UNK, ORAL
     Route: 048
  8. MORPHINE SULFATE [Concomitant]
  9. FLUCONAZOLE [Suspect]
     Indication: OROPHARYNGEAL CANDIDIASIS
     Dosage: 200 MG, UNK, INTRAVENOUS (NOT OTHERWISE SPECIFIED)
  10. FERROUS SULFATE TAB [Concomitant]
  11. HYDROMORPHINE HYDROCHLORIDE [Concomitant]
  12. ACETAMINOPHEN [Concomitant]
  13. SODIUM CHLORIDE [Concomitant]
  14. RIFABUTIN [Suspect]
     Indication: MYCOBACTERIUM AVIUM COMPLEX INFECTION
     Dosage: 150 MG 3 TIMES PER WEEK, UNK, ORAL
     Route: 048
  15. FLUCONAZOLE [Suspect]
     Indication: OROPHARYNGEAL CANDIDIASIS
     Dosage: 100 MG MILLIGRAM(S), UNK, ORAL; 400 MG MILLIGRAM(S), ORAL, 800 MG MILLIGRAM(S), ORAL, 200 MG MILLIGR
     Route: 048
  16. ATAZANAVIR [Concomitant]
  17. MOXIFLOXACIN [Concomitant]
  18. VALGANCICLOVIR [Concomitant]
  19. FILGRASTIM [Concomitant]
  20. ALPRAZOLAM [Concomitant]

REACTIONS (18)
  - DRUG INTERACTION [None]
  - SENSORY DISTURBANCE [None]
  - FOOD INTOLERANCE [None]
  - GASTROINTESTINAL MOTILITY DISORDER [None]
  - GASTROOESOPHAGEAL REFLUX DISEASE [None]
  - OESOPHAGEAL SPASM [None]
  - PLATELET COUNT INCREASED [None]
  - THROMBOCYTOPENIA [None]
  - NAUSEA [None]
  - VOMITING [None]
  - LEUKOPENIA [None]
  - DISCOMFORT [None]
  - WEIGHT DECREASED [None]
  - CHEST PAIN [None]
  - ODYNOPHAGIA [None]
  - IRON DEFICIENCY ANAEMIA [None]
  - ANAEMIA OF CHRONIC DISEASE [None]
  - CANDIDIASIS [None]
